FAERS Safety Report 12110711 (Version 1)
Quarter: 2016Q1

REPORT INFORMATION
  Report Type: Report from Study
  Country: DE (occurrence: DE)
  Receive Date: 20160224
  Receipt Date: 20160224
  Transmission Date: 20160526
  Serious: Yes (Hospitalization)
  Sender: FDA-Public Use
  Company Number: DE-ABBVIE-16P-062-1565675-00

PATIENT
  Sex: Female

DRUGS (1)
  1. DUODOPA [Suspect]
     Active Substance: CARBIDOPA\LEVODOPA
     Indication: PARKINSON^S DISEASE
     Dosage: MORNING DOSE: 7.7 ML, CONTINOUS RATE DOSE: 2.7 ML/H, EXTRA DOSE: 1.0 ML
     Route: 050
     Dates: start: 20140425

REACTIONS (1)
  - Movement disorder [Not Recovered/Not Resolved]
